FAERS Safety Report 24410907 (Version 1)
Quarter: 2024Q4

REPORT INFORMATION
  Report Type: Spontaneous
  Country: US (occurrence: US)
  Receive Date: 20241008
  Receipt Date: 20241008
  Transmission Date: 20250115
  Serious: Yes (Other)
  Sender: MYLAN
  Company Number: US-MYLANLABS-2024M1088661

PATIENT
  Age: 51 Year
  Sex: Female

DRUGS (3)
  1. PREDNISONE [Suspect]
     Active Substance: PREDNISONE
     Indication: Eosinophilic pneumonia chronic
     Dosage: 1 MILLIGRAM/KILOGRAM; BASED ON IDEAL BODY WEIGHT
     Route: 065
  2. PREDNISONE [Suspect]
     Active Substance: PREDNISONE
     Dosage: UNK; DOSE TAPPERED
     Route: 065
  3. PREDNISONE [Suspect]
     Active Substance: PREDNISONE
     Dosage: UNK; REDUCED BELOW 20MG/DAY
     Route: 065

REACTIONS (2)
  - Rebound effect [Recovering/Resolving]
  - Eosinophilic pneumonia chronic [Recovering/Resolving]
